FAERS Safety Report 14329213 (Version 2)
Quarter: 2018Q4

REPORT INFORMATION
  Report Type: Report from Study
  Country: FR (occurrence: FR)
  Receive Date: 20171227
  Receipt Date: 20181129
  Transmission Date: 20190204
  Serious: Yes (Other)
  Sender: FDA-Public Use
  Company Number: FR-PFIZER INC-2017545311

PATIENT
  Sex: Female

DRUGS (4)
  1. DOXORUBICIN HCL [Suspect]
     Active Substance: DOXORUBICIN HYDROCHLORIDE
     Indication: SARCOMA UTERUS
     Dosage: 50 MG/M2, CYCLIC (FOUR CYCLES, D1)
  2. IFOSFAMIDE. [Suspect]
     Active Substance: IFOSFAMIDE
     Indication: SARCOMA UTERUS
     Dosage: 3 G/M2, CYCLIC (FOUR CYCLES, PER DAY D1-2)
  3. CISPLATIN. [Suspect]
     Active Substance: CISPLATIN
     Indication: SARCOMA UTERUS
     Dosage: 75 MG/M2, CYCLIC (FOUR CYCLES, D3)
  4. G-CSF [Concomitant]
     Active Substance: GRANULOCYTE COLONY-STIMULATING FACTOR NOS
     Indication: SARCOMA UTERUS
     Dosage: UNK, CYCLIC (FOUR CYCLES, Q 3 WEEKS)

REACTIONS (2)
  - Second primary malignancy [Unknown]
  - Acute leukaemia [Unknown]
